FAERS Safety Report 22119497 (Version 2)
Quarter: 2023Q2

REPORT INFORMATION
  Report Type: Report from Study
  Country: US (occurrence: US)
  Receive Date: 20230321
  Receipt Date: 20230403
  Transmission Date: 20230722
  Serious: Yes (Hospitalization)
  Sender: FDA-Public Use
  Company Number: US-MYLANLABS-2023M1029490

PATIENT
  Age: 66 Year
  Sex: Female

DRUGS (8)
  1. REVATIO [Suspect]
     Active Substance: SILDENAFIL CITRATE
     Indication: Pulmonary arterial hypertension
     Dosage: 80 MILLIGRAM, TID
     Route: 065
     Dates: start: 202106
  2. AMBRISENTAN [Suspect]
     Active Substance: AMBRISENTAN
     Indication: Pulmonary arterial hypertension
     Dosage: 10 MILLIGRAM, QD
     Route: 065
     Dates: start: 202001
  3. AMBRISENTAN [Suspect]
     Active Substance: AMBRISENTAN
     Dosage: 10 MILLIGRAM, QD
     Route: 065
     Dates: start: 20200120
  4. AMBRISENTAN [Suspect]
     Active Substance: AMBRISENTAN
     Dosage: 10 MILLIGRAM, QD
     Route: 065
     Dates: start: 202106
  5. REMODULIN [Suspect]
     Active Substance: TREPROSTINIL
     Indication: Pulmonary arterial hypertension
     Dosage: UNK
     Route: 065
     Dates: start: 20220919
  6. REMODULIN [Suspect]
     Active Substance: TREPROSTINIL
     Dosage: 63.3 MILLIGRAM, QD
     Route: 065
     Dates: start: 202209
  7. REMODULIN [Suspect]
     Active Substance: TREPROSTINIL
     Dosage: 47.60 MILLIGRAM
     Route: 065
     Dates: start: 202210
  8. TYVASO [Suspect]
     Active Substance: TREPROSTINIL
     Indication: Pulmonary arterial hypertension
     Dosage: 0.6 MILLIGRAM, QID
     Route: 065
     Dates: start: 202103

REACTIONS (7)
  - Flatulence [Unknown]
  - Oedema [Unknown]
  - Dizziness [Unknown]
  - Blood pressure increased [Unknown]
  - Pleural effusion [Unknown]
  - Diarrhoea [Unknown]
  - Inappropriate schedule of product administration [Unknown]

NARRATIVE: CASE EVENT DATE: 20230201
